FAERS Safety Report 10080932 (Version 4)
Quarter: 2019Q4

REPORT INFORMATION
  Report Type: Report from Study
  Country: DE (occurrence: DE)
  Receive Date: 20140416
  Receipt Date: 20191202
  Transmission Date: 20200122
  Serious: No
  Sender: FDA-Public Use
  Company Number: DE-SA-2014SA044779

PATIENT
  Age: 75 Year
  Sex: Male
  Weight: 81 kg

DRUGS (5)
  1. AFLIBERCEPT [Suspect]
     Active Substance: AFLIBERCEPT
     Indication: COLON CANCER METASTATIC
     Dosage: 324 MG,QCY
     Route: 042
     Dates: start: 20140318, end: 20140318
  2. IRINOTECAN [Concomitant]
     Active Substance: IRINOTECAN
     Indication: COLON CANCER METASTATIC
     Dosage: UNK UNK,QCY
     Route: 042
  3. LEUCOVORIN [FOLINIC ACID] [Concomitant]
     Active Substance: LEUCOVORIN
     Indication: COLON CANCER METASTATIC
     Dosage: UNK UNK,QCY
     Route: 042
  4. FLUOROURACIL. [Concomitant]
     Active Substance: FLUOROURACIL
     Indication: COLON CANCER METASTATIC
     Dosage: UNK UNK,QCY
     Route: 042
  5. AFLIBERCEPT [Suspect]
     Active Substance: AFLIBERCEPT
     Dosage: 4 MG/KG,QCY
     Route: 042
     Dates: start: 20131211, end: 20131211

REACTIONS (1)
  - Sudden visual loss [Recovered/Resolved with Sequelae]

NARRATIVE: CASE EVENT DATE: 20140327
